FAERS Safety Report 26076899 (Version 1)
Quarter: 2025Q4

REPORT INFORMATION
  Report Type: Spontaneous
  Country: EU (occurrence: EU)
  Receive Date: 20251121
  Receipt Date: 20251121
  Transmission Date: 20260117
  Serious: Yes (Death)
  Sender: JOHNSON AND JOHNSON
  Company Number: None

PATIENT
  Age: 78 Year
  Sex: Female
  Weight: 70 kg

DRUGS (1)
  1. XARELTO [Suspect]
     Active Substance: RIVAROXABAN
     Indication: Atrial fibrillation
     Dosage: 1 CP/J
     Route: 048
     Dates: start: 202509, end: 202510

REACTIONS (3)
  - Cardiogenic shock [Fatal]
  - Shock haemorrhagic [Fatal]
  - Anticoagulation drug level increased [Unknown]

NARRATIVE: CASE EVENT DATE: 20251022
